FAERS Safety Report 19648143 (Version 9)
Quarter: 2021Q3

REPORT INFORMATION
  Report Type: Report from Study
  Country: CZ (occurrence: CZ)
  Receive Date: 20210802
  Receipt Date: 20210927
  Transmission Date: 20211014
  Serious: Yes (Life-Threatening, Hospitalization)
  Sender: FDA-Public Use
  Company Number: CZ-AMGEN-CZECT2021118071

PATIENT
  Age: 63 Year
  Sex: Female
  Weight: 101 kg

DRUGS (8)
  1. DEXAMETHASONE. [Concomitant]
     Active Substance: DEXAMETHASONE
     Indication: PLASMA CELL MYELOMA
     Dosage: 40 MILLIGRAM
     Route: 065
     Dates: start: 20210721, end: 20210804
  2. LENALIDOMIDE [Concomitant]
     Active Substance: LENALIDOMIDE
     Indication: PLASMA CELL MYELOMA
     Dosage: 25 MILLIGRAM
     Dates: start: 20210721, end: 20210729
  3. CARFILZOMIB [Suspect]
     Active Substance: CARFILZOMIB
     Indication: PLASMA CELL MYELOMA
     Dosage: UNK MILLIGRAM, PER CHEMO REGIM
     Route: 042
     Dates: start: 20210721
  4. PRESTARIUM NEO [Concomitant]
     Active Substance: PERINDOPRIL ARGININE
     Dosage: 2.5?5 MILLIGRAM
     Route: 048
     Dates: start: 2021
  5. HELICID [OMEPRAZOLE] [Concomitant]
     Active Substance: OMEPRAZOLE
     Dosage: 20 MILLIGRAM
     Dates: start: 20210721
  6. CONCOR COR [Concomitant]
     Active Substance: BISOPROLOL FUMARATE
     Dosage: 2.5 MILLIGRAM
     Route: 048
     Dates: start: 2013
  7. ZOVIRAX [Concomitant]
     Active Substance: ACYCLOVIR
     Dosage: 400 MILLIGRAM
     Dates: start: 20210721
  8. FRAXIPARINE [Concomitant]
     Active Substance: NADROPARIN CALCIUM
     Dosage: 0.8 MILLILITER
     Dates: start: 20210721

REACTIONS (1)
  - Angina pectoris [Recovered/Resolved]

NARRATIVE: CASE EVENT DATE: 20210729
